FAERS Safety Report 8606826 (Version 2)
Quarter: 2013Q2

REPORT INFORMATION
  Report Type: Spontaneous
  Country: US (occurrence: US)
  Receive Date: 20120611
  Receipt Date: 20130617
  Transmission Date: 20140414
  Serious: Yes (Hospitalization, Disabling)
  Sender: FDA-Public Use
  Company Number: US-ASTRAZENECA-2012SE35794

PATIENT
  Age: 49 Year
  Sex: Male

DRUGS (11)
  1. NEXIUM [Suspect]
     Indication: GASTROOESOPHAGEAL REFLUX DISEASE
     Dosage: ONCE DALIY
     Route: 048
  2. PRILOSEC [Suspect]
     Route: 048
  3. PREVACID [Concomitant]
  4. ZANTAC [Concomitant]
  5. TAGAMET [Concomitant]
  6. PEPCID [Concomitant]
  7. ALKA-SELTZER [Concomitant]
  8. MILK OF MAGNESIA [Concomitant]
     Dates: end: 201303
  9. ROLAIDS [Concomitant]
  10. MYLANTA [Concomitant]
  11. MOBIC [Concomitant]
     Indication: ARTHRITIS

REACTIONS (14)
  - Arthropathy [Unknown]
  - Back disorder [Unknown]
  - Gallbladder disorder [Unknown]
  - Hernia [Unknown]
  - Mental disorder [Unknown]
  - Musculoskeletal discomfort [Unknown]
  - Rib fracture [Unknown]
  - Osteoporosis [Unknown]
  - Androgen deficiency [Unknown]
  - Arthritis [Unknown]
  - Foot fracture [Unknown]
  - Glaucoma [Unknown]
  - Skeletal injury [Unknown]
  - Depression [Unknown]
